FAERS Safety Report 21659880 (Version 2)
Quarter: 2023Q1

REPORT INFORMATION
  Report Type: Spontaneous
  Country: JP (occurrence: JP)
  Receive Date: 20221130
  Receipt Date: 20230123
  Transmission Date: 20230418
  Serious: Yes (Other)
  Sender: FDA-Public Use
  Company Number: JP-002147023-NVSJ2022JP094960

PATIENT
  Age: 85 Year
  Sex: Female

DRUGS (2)
  1. BEOVU [Suspect]
     Active Substance: BROLUCIZUMAB-DBLL
     Indication: Age-related macular degeneration
     Dosage: 6 MG,LEFT EYE
     Route: 031
     Dates: start: 20220303, end: 20220303
  2. BEOVU [Suspect]
     Active Substance: BROLUCIZUMAB-DBLL
     Dosage: 6 MG, LEFT EYE
     Route: 031
     Dates: start: 20220714, end: 20220714

REACTIONS (5)
  - Coronary artery stenosis [Unknown]
  - Chest pain [Unknown]
  - Corneal endothelial cell loss [Not Recovered/Not Resolved]
  - Iritis [Recovering/Resolving]
  - Anterior chamber cell [Recovered/Resolved]

NARRATIVE: CASE EVENT DATE: 20220715
